FAERS Safety Report 6259269-3 (Version None)
Quarter: 2009Q3

REPORT INFORMATION
  Report Type: 
  Country: None (occurrence: None)
  Receive Date: 20090707
  Receipt Date: 20090630
  Transmission Date: 20100115
  Serious: Yes (Hospitalization)
  Sender: FDA-Public Use
  Company Number: CA-ABBOTT-09P-028-0582700-00

PATIENT
  Sex: Male

DRUGS (5)
  1. LUPRON DEPOT [Suspect]
     Indication: PROSTATE CANCER
     Route: 050
     Dates: start: 20051124
  2. GLUCONONORM [Concomitant]
     Indication: DRUG USE FOR UNKNOWN INDICATION
  3. GLUCONONORM [Concomitant]
  4. ASAPHEN [Concomitant]
     Indication: DRUG USE FOR UNKNOWN INDICATION
  5. CARBOCAL [Concomitant]
     Indication: DRUG USE FOR UNKNOWN INDICATION

REACTIONS (2)
  - HERNIA [None]
  - RENAL FAILURE [None]
